FAERS Safety Report 9549531 (Version 1)
Quarter: 2013Q3

REPORT INFORMATION
  Report Type: Spontaneous
  Country: US (occurrence: None)
  Receive Date: 20130719
  Receipt Date: 20130719
  Transmission Date: 20140515
  Serious: Yes (Hospitalization)
  Sender: FDA-Public Use
  Company Number: 2013BAX000369

PATIENT
  Age: 69 Year
  Sex: 0

DRUGS (3)
  1. CYCLOPHOSPHAMIDE [Suspect]
     Indication: PLASMA CELL MYELOMA
     Dates: start: 20120622
  2. DECADRON [Suspect]
     Dosage: 40 MG, 4 DAYS ON 4 DAYS OFF, ORAL
     Route: 048
  3. BORTEZOMIB [Suspect]
     Indication: PLASMA CELL MYELOMA
     Dosage: 0.3714 MG/M2 (1.3MG/M2, 2 IN 1 WK), SUBCUTANEOUS
     Route: 058
     Dates: start: 20120416

REACTIONS (3)
  - Colitis [None]
  - Anaemia [None]
  - Thrombocytopenia [None]
